FAERS Safety Report 6293462-9 (Version None)
Quarter: 2009Q3

REPORT INFORMATION
  Report Type: 
  Country: None (occurrence: None)
  Receive Date: 20090803
  Receipt Date: 20090723
  Transmission Date: 20100115
  Serious: Yes (Disabling)
  Sender: FDA-Public Use
  Company Number: AU-ASTRAZENECA-2009SE05473

PATIENT
  Age: 52 Year
  Sex: Male

DRUGS (3)
  1. ATACAND [Suspect]
     Route: 048
  2. RISPERDAL [Concomitant]
     Route: 048
  3. TEGRETOL [Concomitant]
     Route: 048

REACTIONS (1)
  - ACCOMMODATION DISORDER [None]
